FAERS Safety Report 8993457 (Version 1)
Quarter: 2013Q1

REPORT INFORMATION
  Report Type: Spontaneous
  Country: US (occurrence: US)
  Receive Date: 20130102
  Receipt Date: 20130102
  Transmission Date: 20140127
  Serious: Yes (Death)
  Sender: FDA-Public Use
  Company Number: US-BAYER-2012-135282

PATIENT
  Age: 94 Year
  Sex: Female

DRUGS (1)
  1. PHILLIPS^ MILK OF MAGNESIA [Suspect]
     Indication: CONSTIPATION
     Route: 048

REACTIONS (2)
  - Death of relative [Fatal]
  - Incorrect drug administration duration [None]
